FAERS Safety Report 24005509 (Version 2)
Quarter: 2024Q2

REPORT INFORMATION
  Report Type: Spontaneous
  Country: PK (occurrence: PK)
  Receive Date: 20240624
  Receipt Date: 20240626
  Transmission Date: 20240716
  Serious: Yes (Other)
  Sender: FDA-Public Use
  Company Number: PK-PFIZER INC-PV202400011200

PATIENT
  Age: 35 Year
  Sex: Female
  Weight: 63 kg

DRUGS (9)
  1. IXIFI [Suspect]
     Active Substance: INFLIXIMAB-QBTX
     Indication: Takayasu^s arteritis
     Dosage: 200MG
     Route: 042
     Dates: start: 20240304
  2. IXIFI [Suspect]
     Active Substance: INFLIXIMAB-QBTX
     Indication: Rheumatoid arthritis
     Dosage: 200MG THIRD DOSE
     Route: 042
     Dates: start: 20240419
  3. RISEK [OMEPRAZOLE] [Concomitant]
     Dosage: 40 MG, 1X/DAY (1+0+0)
  4. DELTACORTRIL [Concomitant]
     Active Substance: PREDNISOLONE
     Dosage: 5 MG, 1X/DAY; (1+0+0) 1 TAB DAILY
  5. LEFLUNOMIDE [Concomitant]
     Active Substance: LEFLUNOMIDE
     Dosage: 10 MG, 1X/DAY; (1+0+0)  1 TAB DAILY
  6. NEBIX [Concomitant]
     Dosage: 2.5 MG  (0+0+1) 1 TAB BEFORE SLEEP
  7. TRIFORGE [Concomitant]
     Dosage: 5/160/2.5 (1+0+0) 1 TAB AFTER BREAKFAST DAILY
  8. EVION [Concomitant]
     Active Substance: .ALPHA.-TOCOPHEROL ACETATE
     Dosage: 40MG (1+0+0)  1 DAILY
  9. OSNATE D [Concomitant]
     Dosage: 1 DF, DAILY; (1+0+0) 1 TAB DAILY

REACTIONS (3)
  - Myocarditis [Unknown]
  - Uveitis [Unknown]
  - Renal atrophy [Unknown]
